APPROVED DRUG PRODUCT: CARFILZOMIB
Active Ingredient: CARFILZOMIB
Strength: 10MG/VIAL
Dosage Form/Route: POWDER;INTRAVENOUS
Application: A209330 | Product #001
Applicant: BRECKENRIDGE PHARMACEUTICAL INC
Approved: Jun 11, 2021 | RLD: No | RS: No | Type: DISCN